FAERS Safety Report 17210271 (Version 1)
Quarter: 2019Q4

REPORT INFORMATION
  Report Type: Spontaneous
  Country: GB (occurrence: GB)
  Receive Date: 20191227
  Receipt Date: 20191227
  Transmission Date: 20200122
  Serious: Yes (Other)
  Sender: FDA-Public Use
  Company Number: GB-MYLANLABS-2019M1129765

PATIENT
  Age: 67 Year
  Sex: Male

DRUGS (4)
  1. ONDANSETRON [Concomitant]
     Active Substance: ONDANSETRON
  2. PEGFILGRASTIM [Suspect]
     Active Substance: PEGFILGRASTIM
     Indication: PANCREATIC CARCINOMA
     Dosage: 6 MILLIGRAM
     Route: 058
     Dates: start: 2019
  3. GEMCITABINE. [Concomitant]
     Active Substance: GEMCITABINE
     Dosage: 1600MG/160ML
  4. DEXAMETHASONE. [Concomitant]
     Active Substance: DEXAMETHASONE

REACTIONS (4)
  - Neuropathy peripheral [Unknown]
  - Fatigue [Unknown]
  - Dyspnoea exertional [Unknown]
  - Taste disorder [Unknown]

NARRATIVE: CASE EVENT DATE: 20191118
